FAERS Safety Report 8551916 (Version 3)
Quarter: 2013Q2

REPORT INFORMATION
  Report Type: Report from Study
  Country: US (occurrence: US)
  Receive Date: 20120508
  Receipt Date: 20130605
  Transmission Date: 20140414
  Serious: Yes (Hospitalization, Other)
  Sender: FDA-Public Use
  Company Number: US-ABBOTT-12P-163-0931870-00

PATIENT
  Age: 17 Year
  Sex: Male
  Weight: 74.91 kg

DRUGS (4)
  1. HUMIRA [Suspect]
     Indication: CROHN^S DISEASE
     Dates: start: 201103, end: 201103
  2. HUMIRA [Suspect]
     Dosage: 2 WEEKS AFTER INITIAL DOSE
     Dates: start: 201103, end: 201103
  3. HUMIRA [Suspect]
     Dosage: STARTED 4 WEEKS AFTER INITIAL DOSE
     Dates: start: 201104
  4. VITAMINS [Concomitant]
     Indication: VITAMIN SUPPLEMENTATION

REACTIONS (28)
  - Enterovesical fistula [Recovered/Resolved]
  - Pyrexia [Recovered/Resolved]
  - Intestinal stenosis [Recovered/Resolved]
  - Vomiting [Recovered/Resolved]
  - Escherichia infection [Recovered/Resolved]
  - Small intestinal obstruction [Recovered/Resolved]
  - Abdominal pain [Recovered/Resolved]
  - Ileitis [Unknown]
  - Intestinal mucosal hypertrophy [Recovered/Resolved]
  - Bladder hypertrophy [Unknown]
  - Soft tissue disorder [Unknown]
  - Abdominal pain [Recovered/Resolved]
  - Diarrhoea [Unknown]
  - Vomiting [Unknown]
  - Crohn^s disease [Unknown]
  - Abdominal pain [Unknown]
  - Food intolerance [Unknown]
  - Abdominal pain [Recovered/Resolved]
  - Crohn^s disease [Recovered/Resolved]
  - Crohn^s disease [Recovered/Resolved]
  - Crohn^s disease [Recovered/Resolved]
  - Intestinal obstruction [Recovered/Resolved]
  - Impaired healing [Recovered/Resolved]
  - Nausea [Recovered/Resolved]
  - Stress [Unknown]
  - Acne cystic [Recovered/Resolved]
  - Bladder disorder [Not Recovered/Not Resolved]
  - Faecaluria [Recovered/Resolved]
